FAERS Safety Report 4476727-2 (Version None)
Quarter: 2004Q4

REPORT INFORMATION
  Report Type: 
  Country: None (occurrence: None)
  Receive Date: 20041013
  Receipt Date: 20041011
  Transmission Date: 20050328
  Serious: Yes (Death)
  Sender: FDA-Public Use
  Company Number: KII-2001-0007290

PATIENT
  Sex: Female

DRUGS (1)
  1. OXYCONTIN [Suspect]
     Indication: CANCER PAIN
     Dosage: 80 MG,; 120 MG; 160 MG, Q12H

REACTIONS (2)
  - DYSARTHRIA [None]
  - SEDATION [None]
